FAERS Safety Report 9892240 (Version 1)
Quarter: 2014Q1

REPORT INFORMATION
  Report Type: Spontaneous
  Country: US (occurrence: US)
  Receive Date: 20140212
  Receipt Date: 20140212
  Transmission Date: 20141002
  Serious: No
  Sender: FDA-Public Use
  Company Number: US-MALLINCKRODT-T201305147

PATIENT
  Age: 50 Year
  Sex: Male
  Weight: 74.83 kg

DRUGS (8)
  1. FENTANYL TRANSDERMAL SYSTEM [Suspect]
     Indication: RHEUMATOID ARTHRITIS
     Dosage: 100 UG/HR, Q72H
     Route: 062
     Dates: start: 20131115
  2. FENTANYL TRANSDERMAL SYSTEM [Suspect]
     Indication: PAIN
  3. ACYCLOVIR [Concomitant]
  4. ESCITALOPRAM [Concomitant]
  5. VALIUM [Concomitant]
  6. PRILOSEC [Concomitant]
  7. ATENOLOL [Concomitant]
  8. LIALDA [Concomitant]

REACTIONS (5)
  - Incorrect product storage [Unknown]
  - Irritability [Not Recovered/Not Resolved]
  - Muscle tightness [Not Recovered/Not Resolved]
  - Restlessness [Not Recovered/Not Resolved]
  - Drug effect decreased [Not Recovered/Not Resolved]
